FAERS Safety Report 9089245 (Version 3)
Quarter: 2013Q3

REPORT INFORMATION
  Report Type: Report from Study
  Country: GB (occurrence: GB)
  Receive Date: 20130131
  Receipt Date: 20130903
  Transmission Date: 20140515
  Serious: Yes (Hospitalization)
  Sender: FDA-Public Use
  Company Number: PHHO2013GB001618

PATIENT
  Age: 76 Year
  Sex: Male
  Weight: 105.8 kg

DRUGS (3)
  1. OMEPRAZOLE [Suspect]
     Indication: DUODENITIS
     Dosage: 20 MG, QD
     Dates: start: 20071127, end: 20130117
  2. PLACEBO [Suspect]
     Indication: CARDIOVASCULAR DISORDER
     Route: 048
     Dates: start: 20081111, end: 20111222
  3. RAMIPRIL [Concomitant]
     Indication: ESSENTIAL HYPERTENSION
     Dosage: 10 MG, QD
     Dates: start: 20111017, end: 20130117

REACTIONS (2)
  - Blood calcium decreased [Recovered/Resolved]
  - Blood magnesium decreased [Recovered/Resolved]
